FAERS Safety Report 8191231-6 (Version None)
Quarter: 2012Q1

REPORT INFORMATION
  Report Type: 
  Country: None (occurrence: None)
  Receive Date: 20120307
  Receipt Date: 20120301
  Transmission Date: 20120608
  Serious: Yes (Hospitalization)
  Sender: FDA-Public Use
  Company Number: ES-B.I. PHARMACEUTICALS,INC./RIDGEFIELD-2012-ES-00087ES

PATIENT
  Age: 68 Year
  Sex: Female

DRUGS (6)
  1. PREDNISONE [Concomitant]
     Dosage: 10 MG
     Route: 048
     Dates: start: 20111215
  2. PRADAXA [Suspect]
     Indication: ATRIAL FIBRILLATION
     Dosage: 220 MG
     Route: 048
     Dates: start: 20111104
  3. MORPHINE SULFATE [Concomitant]
     Indication: PAIN
     Dosage: 30 MG
     Route: 048
     Dates: start: 20081222
  4. DIGOXIN [Concomitant]
     Indication: ATRIAL FIBRILLATION
     Dosage: 0.12 MG
     Route: 048
     Dates: start: 20081002
  5. OMEPRAZOLE [Concomitant]
     Indication: ABDOMINAL PAIN UPPER
     Dosage: 80 MG
     Route: 048
     Dates: start: 20111215
  6. LEFLUNOMIDA [Concomitant]
     Indication: ATRIAL FIBRILLATION
     Route: 048
     Dates: start: 20111104

REACTIONS (3)
  - RECTAL HAEMORRHAGE [None]
  - SEPSIS [None]
  - SYNCOPE [None]
